FAERS Safety Report 14402445 (Version 2)
Quarter: 2018Q2

REPORT INFORMATION
  Report Type: Spontaneous
  Country: US (occurrence: US)
  Receive Date: 20180117
  Receipt Date: 20180427
  Transmission Date: 20180711
  Serious: No
  Sender: FDA-Public Use
  Company Number: US-GLAXOSMITHKLINE-US2017GSK203040

PATIENT
  Sex: Female

DRUGS (2)
  1. SORIATANE [Suspect]
     Active Substance: ACITRETIN
     Indication: PSORIASIS
     Dosage: 50 MG, UNK
     Route: 048
     Dates: start: 20140101, end: 20170701
  2. SORIATANE [Suspect]
     Active Substance: ACITRETIN
     Dosage: 25 MG, UNK
     Route: 048
     Dates: start: 20170701

REACTIONS (1)
  - Alopecia [Unknown]
